FAERS Safety Report 14901293 (Version 1)
Quarter: 2018Q2

REPORT INFORMATION
  Report Type: Spontaneous
  Country: PK (occurrence: PK)
  Receive Date: 20180516
  Receipt Date: 20180516
  Transmission Date: 20180711
  Serious: Yes (Other)
  Sender: FDA-Public Use
  Company Number: PK-SA-2018SA136718

PATIENT
  Age: 55 Year
  Sex: Female

DRUGS (5)
  1. SOLOSTAR [Suspect]
     Active Substance: DEVICE
     Dates: start: 201804
  2. SOLOSTAR [Suspect]
     Active Substance: DEVICE
     Dates: start: 201804
  3. APIDRA SOLOSTAR [Suspect]
     Active Substance: INSULIN GLULISINE
     Indication: DIABETES MELLITUS
     Route: 058
  4. LANTUS SOLOSTAR [Suspect]
     Active Substance: INSULIN GLARGINE
     Indication: DIABETES MELLITUS
     Route: 058
     Dates: start: 201804
  5. APIDRA SOLOSTAR [Suspect]
     Active Substance: INSULIN GLULISINE
     Indication: DIABETES MELLITUS
     Route: 058
     Dates: start: 201804

REACTIONS (6)
  - Hyperglycaemia [Not Recovered/Not Resolved]
  - Pain [Unknown]
  - Pollakiuria [Unknown]
  - Glaucoma [Unknown]
  - Eye disorder [Unknown]
  - Dry mouth [Unknown]

NARRATIVE: CASE EVENT DATE: 201711
